FAERS Safety Report 24258129 (Version 7)
Quarter: 2024Q4

REPORT INFORMATION
  Report Type: Report from Study
  Country: MX (occurrence: MX)
  Receive Date: 20240828
  Receipt Date: 20241126
  Transmission Date: 20250114
  Serious: Yes (Life-Threatening, Hospitalization, Other)
  Sender: NOVARTIS
  Company Number: MX-002147023-NVSC2024MX170782

PATIENT
  Age: 57 Year
  Sex: Female
  Weight: 73 kg

DRUGS (9)
  1. KISQALI [Suspect]
     Active Substance: RIBOCICLIB
     Indication: Breast cancer
     Dosage: 2 DOSAGE FORM (200 MG), QD
     Route: 048
     Dates: start: 202308
  2. KISQALI [Suspect]
     Active Substance: RIBOCICLIB
     Dosage: 3 DOSAGE FORM (200 MG), QD
     Route: 048
  3. KISQALI [Suspect]
     Active Substance: RIBOCICLIB
     Dosage: 3 DOSAGE FORM (200 MG), QD
     Route: 048
     Dates: start: 2023
  4. KISQALI [Suspect]
     Active Substance: RIBOCICLIB
     Dosage: 3 DOSAGE FORM (200 MG), QD
     Route: 048
     Dates: start: 202402
  5. KISQALI [Suspect]
     Active Substance: RIBOCICLIB
     Dosage: 3 X 200 MG, QD
     Route: 048
  6. ZOLEDRONIC ACID [Suspect]
     Active Substance: ZOLEDRONIC ACID
     Indication: Osteoporosis
     Dosage: 1 DOSAGE FORM, Q3MO
     Route: 042
     Dates: start: 2021, end: 2023
  7. ZOLEDRONIC ACID [Suspect]
     Active Substance: ZOLEDRONIC ACID
     Dosage: 1 DOSAGE FORM, Q2MO
     Route: 042
     Dates: start: 2023
  8. ANASTROZOLE [Concomitant]
     Active Substance: ANASTROZOLE
     Indication: Breast cancer
     Dosage: 1 DOSAGE FORM, QD (TABLET)
     Route: 065
     Dates: start: 202108
  9. TRAMADOL [Concomitant]
     Active Substance: TRAMADOL
     Indication: Pain
     Dosage: 1 DOSAGE FORM, QD (TABLET)
     Route: 048
     Dates: start: 2022

REACTIONS (37)
  - Dengue fever [Unknown]
  - Platelet count decreased [Unknown]
  - Fatigue [Unknown]
  - Agitation [Unknown]
  - Dysstasia [Unknown]
  - Chills [Unknown]
  - Headache [Unknown]
  - Bone pain [Unknown]
  - Arthralgia [Unknown]
  - Body temperature increased [Unknown]
  - Nausea [Recovering/Resolving]
  - Vomiting [Recovering/Resolving]
  - Metastases to spine [Not Recovered/Not Resolved]
  - Metastases to bone [Not Recovered/Not Resolved]
  - Loss of consciousness [Not Recovered/Not Resolved]
  - Haematemesis [Unknown]
  - Nervous system disorder [Recovered/Resolved]
  - Gingival bleeding [Unknown]
  - Hepatic steatosis [Not Recovered/Not Resolved]
  - Back pain [Not Recovered/Not Resolved]
  - Neck pain [Not Recovered/Not Resolved]
  - Fear [Recovered/Resolved]
  - Pyrexia [Unknown]
  - Feeling of despair [Recovered/Resolved]
  - Decreased appetite [Not Recovered/Not Resolved]
  - Malaise [Recovered/Resolved]
  - Headache [Recovered/Resolved]
  - Groin pain [Recovered/Resolved]
  - Anxiety [Recovered/Resolved]
  - Stress [Recovered/Resolved]
  - Rash [Recovered/Resolved with Sequelae]
  - Pruritus [Not Recovered/Not Resolved]
  - Crying [Recovered/Resolved]
  - Drug intolerance [Recovered/Resolved]
  - Ear pain [Unknown]
  - Eating disorder [Unknown]
  - Tachycardia [Unknown]

NARRATIVE: CASE EVENT DATE: 20230801
